FAERS Safety Report 21943250 (Version 1)
Quarter: 2023Q1

REPORT INFORMATION
  Report Type: Other
  Country: CA (occurrence: CA)
  Receive Date: 20230202
  Receipt Date: 20230202
  Transmission Date: 20230417
  Serious: Yes (Other)
  Sender: FDA-Public Use
  Company Number: CA-CELLTRION INC.-2023CA001909

PATIENT

DRUGS (19)
  1. TRASTUZUMAB [Suspect]
     Active Substance: TRASTUZUMAB
     Indication: Breast cancer metastatic
     Dosage: 456 MG, 1 EVERY 3 WEEKS
     Route: 041
  2. TRASTUZUMAB [Suspect]
     Active Substance: TRASTUZUMAB
     Dosage: UNK
     Route: 041
  3. TRASTUZUMAB [Suspect]
     Active Substance: TRASTUZUMAB
     Dosage: 342 MG, 1 EVERY 4 WEEKS
     Route: 041
  4. TRASTUZUMAB [Suspect]
     Active Substance: TRASTUZUMAB
     Dosage: 360 MG, 1 EVERY 6 WEEKS
     Route: 041
  5. TRASTUZUMAB [Suspect]
     Active Substance: TRASTUZUMAB
     Dosage: 342 MG, 1 EVERY 3 WEEKS
     Route: 041
  6. TRASTUZUMAB [Suspect]
     Active Substance: TRASTUZUMAB
     Dosage: 342 MG, 1 EVERY 3 WEEKS
     Route: 041
  7. TRASTUZUMAB [Suspect]
     Active Substance: TRASTUZUMAB
     Dosage: 396 MG, 1 EVERY 3 WEEKS
     Route: 041
  8. AMITRIPTYLINE [Concomitant]
     Active Substance: AMITRIPTYLINE
     Indication: Headache
  9. AMLODIPINE [Concomitant]
     Active Substance: AMLODIPINE BESYLATE
     Dosage: 10 MG
     Route: 048
  10. CAPECITABINE [Concomitant]
     Active Substance: CAPECITABINE
     Dosage: 500 MG, 2 EVERY 1 DAYS
     Route: 048
  11. GABAPENTIN [Concomitant]
     Active Substance: GABAPENTIN
     Dosage: 200 MG, 3 EVERY 1 DAYS
     Route: 065
  12. IBRANCE [Concomitant]
     Active Substance: PALBOCICLIB
     Route: 065
  13. LETROZOLE [Concomitant]
     Active Substance: LETROZOLE
  14. LORAZEPAM [Concomitant]
     Active Substance: LORAZEPAM
     Dosage: 0.5 MG
     Route: 065
  15. NINTEDANIB [Concomitant]
     Active Substance: NINTEDANIB
  16. RAMIPRIL [Concomitant]
     Active Substance: RAMIPRIL
     Dosage: 5 MG, 1 EVERY 1 DAYS
     Route: 065
  17. TAMOXIFEN [Concomitant]
     Active Substance: TAMOXIFEN
  18. XGEVA [Concomitant]
     Active Substance: DENOSUMAB
  19. ZOLEDRONIC ACID [Concomitant]
     Active Substance: ZOLEDRONIC ACID
     Dosage: 1 EVERY 1 YEARS
     Route: 065

REACTIONS (3)
  - Metastasis [Unknown]
  - Metastases to bone [Unknown]
  - Off label use [Unknown]
